FAERS Safety Report 6095859-9 (Version None)
Quarter: 2009Q1

REPORT INFORMATION
  Report Type: 
  Country: None (occurrence: None)
  Receive Date: 20090227
  Receipt Date: 20080721
  Transmission Date: 20090719
  Serious: Yes (Hospitalization)
  Sender: FDA-Public Use
  Company Number: A0735379A

PATIENT
  Age: 32 Year
  Sex: Male
  Weight: 86.4 kg

DRUGS (3)
  1. LAMICTAL [Suspect]
     Indication: BIPOLAR DISORDER
     Dosage: 100MG PER DAY
     Route: 048
     Dates: start: 20080501, end: 20080620
  2. RISPERDAL [Concomitant]
  3. CLONAZEPAM [Concomitant]

REACTIONS (7)
  - LIP EXFOLIATION [None]
  - LIP HAEMORRHAGE [None]
  - LIP SWELLING [None]
  - OROPHARYNGEAL BLISTERING [None]
  - RASH [None]
  - SKIN EXFOLIATION [None]
  - STEVENS-JOHNSON SYNDROME [None]
